FAERS Safety Report 7921961-X (Version None)
Quarter: 2011Q4

REPORT INFORMATION
  Report Type: 
  Country: None (occurrence: None)
  Receive Date: 20111117
  Receipt Date: 20111109
  Transmission Date: 20120403
  Serious: Yes (Other)
  Sender: FDA-Public Use
  Company Number: US-BAYER-2011-044931

PATIENT
  Sex: Male
  Weight: 81.633 kg

DRUGS (1)
  1. LEVITRA [Suspect]
     Indication: ERECTILE DYSFUNCTION
     Dosage: OCCASIONALLY

REACTIONS (1)
  - EYE INFECTION STAPHYLOCOCCAL [None]
